FAERS Safety Report 9455971 (Version 1)
Quarter: 2013Q3

REPORT INFORMATION
  Report Type: Spontaneous
  Country: US (occurrence: US)
  Receive Date: 20130813
  Receipt Date: 20130813
  Transmission Date: 20140515
  Serious: No
  Sender: FDA-Public Use
  Company Number: US-GALDERMA-US13001748

PATIENT
  Age: 30 Year
  Sex: Male

DRUGS (3)
  1. CLOBETASOL [Suspect]
     Route: 061
  2. CLOBEX (CLOBETASOL PROPIONATE) SPRAY, 0.05% [Concomitant]
     Indication: PSORIASIS
     Route: 061
  3. CLOBEX (CLOBETASOL PROPIONATE) SPRAY, 0.05% [Concomitant]
     Indication: DERMATITIS

REACTIONS (1)
  - Drug ineffective [Recovered/Resolved]
